FAERS Safety Report 7207269-9 (Version None)
Quarter: 2011Q1

REPORT INFORMATION
  Report Type: 
  Country: None (occurrence: None)
  Receive Date: 20110103
  Receipt Date: 20101230
  Transmission Date: 20110831
  Serious: Yes (Death, Hospitalization)
  Sender: FDA-Public Use
  Company Number: CO-ROCHE-750876

PATIENT
  Sex: Female

DRUGS (1)
  1. AVASTIN [Suspect]
     Indication: BREAST CANCER
     Dosage: THE LAST INFUSION WAS ON 07 DEC 2010
     Route: 042
     Dates: start: 20101124

REACTIONS (1)
  - DISEASE PROGRESSION [None]
